FAERS Safety Report 25379030 (Version 1)
Quarter: 2025Q2

REPORT INFORMATION
  Report Type: Spontaneous
  Country: US (occurrence: US)
  Receive Date: 20250530
  Receipt Date: 20250530
  Transmission Date: 20250717
  Serious: Yes (Other)
  Sender: MYLAN
  Company Number: US-MYLANLABS-2025M1044778

PATIENT
  Age: 6 Year
  Sex: Male

DRUGS (48)
  1. PREDNISONE [Suspect]
     Active Substance: PREDNISONE
     Indication: Evans syndrome
     Dosage: 0.25 MILLIGRAM/KILOGRAM, QD
     Route: 048
  2. PREDNISONE [Suspect]
     Active Substance: PREDNISONE
     Dosage: 0.25 MILLIGRAM/KILOGRAM, QD
  3. PREDNISONE [Suspect]
     Active Substance: PREDNISONE
     Dosage: 0.25 MILLIGRAM/KILOGRAM, QD
  4. PREDNISONE [Suspect]
     Active Substance: PREDNISONE
     Dosage: 0.25 MILLIGRAM/KILOGRAM, QD
     Route: 048
  5. PREDNISONE [Suspect]
     Active Substance: PREDNISONE
     Dosage: 2 MILLIGRAM/KILOGRAM, QD
  6. PREDNISONE [Suspect]
     Active Substance: PREDNISONE
     Dosage: 2 MILLIGRAM/KILOGRAM, QD
  7. PREDNISONE [Suspect]
     Active Substance: PREDNISONE
     Dosage: 2 MILLIGRAM/KILOGRAM, QD
     Route: 048
  8. PREDNISONE [Suspect]
     Active Substance: PREDNISONE
     Dosage: 2 MILLIGRAM/KILOGRAM, QD
     Route: 048
  9. PREDNISONE [Suspect]
     Active Substance: PREDNISONE
     Route: 048
  10. PREDNISONE [Suspect]
     Active Substance: PREDNISONE
  11. PREDNISONE [Suspect]
     Active Substance: PREDNISONE
  12. PREDNISONE [Suspect]
     Active Substance: PREDNISONE
     Route: 048
  13. PREDNISONE [Suspect]
     Active Substance: PREDNISONE
  14. PREDNISONE [Suspect]
     Active Substance: PREDNISONE
  15. PREDNISONE [Suspect]
     Active Substance: PREDNISONE
     Route: 048
  16. PREDNISONE [Suspect]
     Active Substance: PREDNISONE
     Route: 048
  17. PREDNISONE [Suspect]
     Active Substance: PREDNISONE
  18. PREDNISONE [Suspect]
     Active Substance: PREDNISONE
  19. PREDNISONE [Suspect]
     Active Substance: PREDNISONE
     Route: 048
  20. PREDNISONE [Suspect]
     Active Substance: PREDNISONE
     Route: 048
  21. PREDNISONE [Suspect]
     Active Substance: PREDNISONE
  22. PREDNISONE [Suspect]
     Active Substance: PREDNISONE
     Route: 048
  23. PREDNISONE [Suspect]
     Active Substance: PREDNISONE
  24. PREDNISONE [Suspect]
     Active Substance: PREDNISONE
     Route: 048
  25. MYCOPHENOLATE MOFETIL [Suspect]
     Active Substance: MYCOPHENOLATE MOFETIL
     Indication: Evans syndrome
     Dosage: 1500 MILLIGRAM, BID
  26. MYCOPHENOLATE MOFETIL [Suspect]
     Active Substance: MYCOPHENOLATE MOFETIL
     Dosage: 1500 MILLIGRAM, BID
     Route: 065
  27. MYCOPHENOLATE MOFETIL [Suspect]
     Active Substance: MYCOPHENOLATE MOFETIL
     Dosage: 1500 MILLIGRAM, BID
     Route: 065
  28. MYCOPHENOLATE MOFETIL [Suspect]
     Active Substance: MYCOPHENOLATE MOFETIL
     Dosage: 1500 MILLIGRAM, BID
  29. IMMUNE GLOBULIN NOS [Suspect]
     Active Substance: IMMUNE GLOBULIN NOS
     Indication: Evans syndrome
  30. IMMUNE GLOBULIN NOS [Suspect]
     Active Substance: IMMUNE GLOBULIN NOS
     Route: 042
  31. IMMUNE GLOBULIN NOS [Suspect]
     Active Substance: IMMUNE GLOBULIN NOS
     Route: 042
  32. IMMUNE GLOBULIN NOS [Suspect]
     Active Substance: IMMUNE GLOBULIN NOS
  33. RITUXIMAB [Suspect]
     Active Substance: RITUXIMAB
     Indication: Evans syndrome
     Dosage: 375 MILLIGRAM/SQ. METER, QW (RECEIVED 4 DOSES)
  34. RITUXIMAB [Suspect]
     Active Substance: RITUXIMAB
     Dosage: 375 MILLIGRAM/SQ. METER, QW (RECEIVED 4 DOSES)
     Route: 065
  35. RITUXIMAB [Suspect]
     Active Substance: RITUXIMAB
     Dosage: 375 MILLIGRAM/SQ. METER, QW (RECEIVED 4 DOSES)
     Route: 065
  36. RITUXIMAB [Suspect]
     Active Substance: RITUXIMAB
     Dosage: 375 MILLIGRAM/SQ. METER, QW (RECEIVED 4 DOSES)
  37. SIROLIMUS [Concomitant]
     Active Substance: SIROLIMUS
     Indication: Evans syndrome
     Route: 065
  38. SIROLIMUS [Concomitant]
     Active Substance: SIROLIMUS
  39. SIROLIMUS [Concomitant]
     Active Substance: SIROLIMUS
  40. SIROLIMUS [Concomitant]
     Active Substance: SIROLIMUS
     Route: 065
  41. SIROLIMUS [Concomitant]
     Active Substance: SIROLIMUS
     Route: 065
  42. SIROLIMUS [Concomitant]
     Active Substance: SIROLIMUS
  43. SIROLIMUS [Concomitant]
     Active Substance: SIROLIMUS
  44. SIROLIMUS [Concomitant]
     Active Substance: SIROLIMUS
     Route: 065
  45. RUXOLITINIB [Concomitant]
     Active Substance: RUXOLITINIB
     Indication: Evans syndrome
     Dosage: 0.4 MILLIGRAM/KILOGRAM, QD
  46. RUXOLITINIB [Concomitant]
     Active Substance: RUXOLITINIB
     Indication: Spondylolisthesis
     Dosage: 0.4 MILLIGRAM/KILOGRAM, QD
     Route: 065
  47. RUXOLITINIB [Concomitant]
     Active Substance: RUXOLITINIB
     Indication: Immune system disorder
     Dosage: 0.4 MILLIGRAM/KILOGRAM, QD
     Route: 065
  48. RUXOLITINIB [Concomitant]
     Active Substance: RUXOLITINIB
     Dosage: 0.4 MILLIGRAM/KILOGRAM, QD

REACTIONS (7)
  - Autoimmune haemolytic anaemia [Unknown]
  - Rebound effect [Unknown]
  - Condition aggravated [Unknown]
  - Compression fracture [Unknown]
  - Drug ineffective for unapproved indication [Unknown]
  - Short stature [Unknown]
  - Off label use [Unknown]
